FAERS Safety Report 8976105 (Version 1)
Quarter: 2012Q4

REPORT INFORMATION
  Report Type: 
  Country: ZA (occurrence: ZA)
  Receive Date: 20121220
  Receipt Date: 20121220
  Transmission Date: 20130627
  Serious: Yes (Other)
  Sender: FDA-Public Use
  Company Number: PHHY2011ZA100736

PATIENT
  Sex: Female

DRUGS (8)
  1. ACLASTA [Suspect]
     Dosage: UNK mg, UNK
     Route: 042
     Dates: start: 2009
  2. ACLASTA [Suspect]
     Dosage: UNK UKN, UNK
     Route: 042
     Dates: start: 2010
  3. ACLASTA [Suspect]
     Dosage: 5 mg/100 ml yearly
     Route: 042
     Dates: start: 201111
  4. PROTOSTAT [Suspect]
     Dosage: UNK
     Dates: start: 201111
  5. VITAMINS NOS [Concomitant]
  6. CALCIUM [Concomitant]
  7. LANZOR [Concomitant]
     Indication: REFLUX GASTRITIS
  8. LANSOLOC [Concomitant]
     Indication: REFLUX GASTRITIS

REACTIONS (12)
  - Fall [Unknown]
  - Ligament rupture [Recovering/Resolving]
  - Joint injury [Unknown]
  - Pain [Unknown]
  - Hernia [Unknown]
  - Blood potassium decreased [Recovering/Resolving]
  - Blood pressure decreased [Unknown]
  - Loss of consciousness [Unknown]
  - Bone density decreased [Unknown]
  - Musculoskeletal discomfort [Unknown]
  - Gastrooesophageal reflux disease [Recovered/Resolved]
  - Nausea [Unknown]
